FAERS Safety Report 10952445 (Version 1)
Quarter: 2015Q1

REPORT INFORMATION
  Report Type: Spontaneous
  Country: US (occurrence: None)
  Receive Date: 20150323
  Receipt Date: 20150323
  Transmission Date: 20150721
  Serious: No
  Sender: FDA-Public Use
  Company Number: VIT-2015-00156

PATIENT
  Age: 44 Year
  Sex: Male
  Weight: 118 kg

DRUGS (7)
  1. PERCOCET (PARACETAMOL) [Concomitant]
  2. NEPHRO-VITE (ASCORBIC ACID) [Concomitant]
  3. VELPHORO [Suspect]
     Active Substance: FERRIC OXYHYDROXIDE
     Indication: HYPERPHOSPHATAEMIA
     Dosage: 2 TOTAL
     Route: 048
     Dates: start: 201501
  4. CALCITRIOL (CALCITRIOL) [Concomitant]
     Active Substance: CALCITRIOL
  5. PRILOSAC (OMEPRAZOLE) [Concomitant]
  6. NEURONTIN [Concomitant]
     Active Substance: GABAPENTIN
  7. TRAZODONE [Concomitant]
     Active Substance: TRAZODONE HYDROCHLORIDE

REACTIONS (4)
  - Palpitations [None]
  - Sensory disturbance [None]
  - Blood potassium increased [None]
  - Feeling abnormal [None]

NARRATIVE: CASE EVENT DATE: 201501
